FAERS Safety Report 10200136 (Version 2)
Quarter: 2014Q2

REPORT INFORMATION
  Report Type: Spontaneous
  Country: FR (occurrence: FR)
  Receive Date: 20140527
  Receipt Date: 20140527
  Transmission Date: 20141212
  Serious: Yes (Other)
  Sender: FDA-Public Use
  Company Number: FR-TEVA-481950ISR

PATIENT
  Age: 78 Year
  Sex: Female

DRUGS (10)
  1. VOLTACARE THERMAL PATCH (NCH) [Suspect]
     Route: 003
  2. NOVONORM [Concomitant]
  3. DILTIAZEM [Concomitant]
  4. XELEVIA [Concomitant]
  5. OMEPRAZOLE [Concomitant]
  6. VENTOLINE [Concomitant]
  7. TEMESTA [Concomitant]
  8. IXPRIM [Concomitant]
  9. MEDIATENSYL [Concomitant]
  10. FLUDEX [Concomitant]

REACTIONS (2)
  - Burns second degree [Recovering/Resolving]
  - Application site burn [None]
